FAERS Safety Report 4595675-0 (Version None)
Quarter: 2005Q1

REPORT INFORMATION
  Report Type: 
  Country: None (occurrence: None)
  Receive Date: 20050224
  Receipt Date: 20050210
  Transmission Date: 20050727
  Serious: Yes (Life-Threatening, Hospitalization)
  Sender: FDA-Public Use
  Company Number: 02100-JPN-04-0250

PATIENT
  Age: 68 Year
  Sex: Female

DRUGS (5)
  1. STUDY CODE NOT BROKEN; ONE OF CILOSTAZOL, ASPIRIN [Suspect]
     Indication: CEREBRAL INFARCTION
     Dosage: ONE OF 200 MG  OR 81 MG; ORAL
     Route: 048
     Dates: start: 20040828, end: 20040906
  2. ELASTASE [Concomitant]
  3. MELOXICAM [Concomitant]
  4. THIAMAZOLE [Concomitant]
  5. AMLODIPINE BESYLATE [Concomitant]

REACTIONS (4)
  - HYDROCEPHALUS [None]
  - MONOPLEGIA [None]
  - RUPTURED CEREBRAL ANEURYSM [None]
  - SUBARACHNOID HAEMORRHAGE [None]
